FAERS Safety Report 26126170 (Version 1)
Quarter: 2025Q4

REPORT INFORMATION
  Report Type: Spontaneous
  Country: US (occurrence: US)
  Receive Date: 20251205
  Receipt Date: 20251205
  Transmission Date: 20260118
  Serious: No
  Sender: NOVO NORDISK
  Company Number: US-NOVOPROD-1462215

PATIENT
  Age: 80 Year
  Sex: Male

DRUGS (4)
  1. NOVOLIN N [Suspect]
     Active Substance: INSULIN HUMAN
     Indication: Type 2 diabetes mellitus
     Dosage: 84 TO 86 UNITS TWICE A DAY
     Route: 058
     Dates: start: 1990
  2. NOVOLIN N [Suspect]
     Active Substance: INSULIN HUMAN
     Dosage: UNK
     Route: 058
  3. NOVOLIN N [Suspect]
     Active Substance: INSULIN HUMAN
     Dosage: UNK
     Route: 058
  4. NOVOLIN R [Concomitant]
     Active Substance: INSULIN HUMAN
     Indication: Type 2 diabetes mellitus
     Dosage: 35 TO 38 UNITS 20-30 MINUTES BEFORE EACH MEAL
     Route: 058
     Dates: start: 1990

REACTIONS (8)
  - Hyperhidrosis [Recovered/Resolved]
  - Corrective lens user [Unknown]
  - Tremor [Recovered/Resolved]
  - Blood glucose increased [Recovered/Resolved]
  - Blood glucose decreased [Recovered/Resolved]
  - Glycosylated haemoglobin increased [Recovered/Resolved]
  - Blood glucose increased [Not Recovered/Not Resolved]
  - Product quality issue [Unknown]

NARRATIVE: CASE EVENT DATE: 20250201
